FAERS Safety Report 6086000-7 (Version None)
Quarter: 2009Q1

REPORT INFORMATION
  Report Type: 
  Country: None (occurrence: None)
  Receive Date: 20090217
  Receipt Date: 20090217
  Transmission Date: 20090719
  Serious: No
  Sender: FDA-Public Use
  Company Number: None

PATIENT
  Age: 64 Year
  Sex: Male
  Weight: 97.5234 kg

DRUGS (3)
  1. LUPRON DEPOT [Suspect]
     Indication: PROSTATE CANCER
     Dosage: 11.25 MG
     Dates: start: 20080301, end: 20080401
  2. LUPRON DEPOT [Suspect]
     Indication: PROSTATE CANCER
     Dosage: 11.25 MG
     Dates: start: 20080703, end: 20080703
  3. VIDAZA [Concomitant]

REACTIONS (1)
  - AMNESIA [None]
